FAERS Safety Report 24562508 (Version 3)
Quarter: 2024Q4

REPORT INFORMATION
  Report Type: Report from Study
  Country: US (occurrence: US)
  Receive Date: 20241029
  Receipt Date: 20241115
  Transmission Date: 20250115
  Serious: Yes (Other)
  Sender: ABBVIE
  Company Number: US-ABBVIE-5981241

PATIENT
  Age: 45 Year
  Sex: Female
  Weight: 117.93 kg

DRUGS (1)
  1. RINVOQ [Suspect]
     Active Substance: UPADACITINIB
     Indication: Dermatitis atopic
     Dosage: FORM STRENGTH: : 30 MILLIGRAM
     Route: 048
     Dates: start: 20240423

REACTIONS (3)
  - Joint injury [Not Recovered/Not Resolved]
  - Procedural pain [Recovering/Resolving]
  - Hip fracture [Recovered/Resolved]

NARRATIVE: CASE EVENT DATE: 20240901
